FAERS Safety Report 10102485 (Version 2)
Quarter: 2014Q2

REPORT INFORMATION
  Report Type: Other
  Country: US (occurrence: US)
  Receive Date: 20140424
  Receipt Date: 20140611
  Transmission Date: 20141212
  Serious: Yes (Death, Hospitalization, Other)
  Sender: FDA-Public Use
  Company Number: US-GSKPPD-2014GSK000449

PATIENT
  Age: 63 Year
  Sex: Male
  Weight: 90.35 kg

DRUGS (6)
  1. AVANDIA [Suspect]
     Indication: DIABETES MELLITUS
     Route: 048
     Dates: start: 2001
  2. TOPROL XL [Concomitant]
  3. ASPIRIN [Concomitant]
  4. LIPITOR [Concomitant]
  5. AMIODARONE [Concomitant]
  6. ALTACE [Concomitant]

REACTIONS (3)
  - Vascular graft [Recovered/Resolved]
  - Cardiac arrest [Fatal]
  - Haemorrhage intracranial [Not Recovered/Not Resolved]
